FAERS Safety Report 8556572-9 (Version None)
Quarter: 2012Q3

REPORT INFORMATION
  Report Type: 
  Country: None (occurrence: None)
  Receive Date: 20120801
  Receipt Date: 20120724
  Transmission Date: 20120928
  Serious: Yes (Hospitalization)
  Sender: FDA-Public Use
  Company Number: US-BAYER-2012-040382

PATIENT
  Age: 28 Year
  Sex: Female

DRUGS (1)
  1. YAZ [Suspect]
     Indication: METRORRHAGIA
     Dosage: UNK
     Dates: start: 20080501, end: 20090501

REACTIONS (7)
  - DEEP VEIN THROMBOSIS [None]
  - PAIN [None]
  - ANXIETY [None]
  - PULMONARY EMBOLISM [None]
  - INJURY [None]
  - GENERAL PHYSICAL HEALTH DETERIORATION [None]
  - EMOTIONAL DISTRESS [None]
